FAERS Safety Report 18726174 (Version 2)
Quarter: 2021Q3

REPORT INFORMATION
  Report Type: Spontaneous
  Country: JP (occurrence: JP)
  Receive Date: 20210111
  Receipt Date: 20210910
  Transmission Date: 20211014
  Serious: Yes (Hospitalization)
  Sender: FDA-Public Use
  Company Number: JP-ELI_LILLY_AND_COMPANY-JP202101001470

PATIENT
  Age: 12 Year
  Sex: Male
  Weight: 29.5 kg

DRUGS (12)
  1. ADCIRCA [Suspect]
     Active Substance: TADALAFIL
     Indication: PULMONARY ARTERIAL HYPERTENSION
     Dosage: 20 MG, DAILY
     Route: 065
     Dates: end: 20200810
  2. VOLIBRIS [Concomitant]
     Active Substance: AMBRISENTAN
     Indication: PULMONARY ARTERIAL HYPERTENSION
     Dosage: 2.5 MG, UNKNOWN
     Route: 065
  3. SPIRONOLACTONE. [Concomitant]
     Active Substance: SPIRONOLACTONE
     Indication: PRODUCT USED FOR UNKNOWN INDICATION
     Dosage: 75 MG, UNKNOWN
     Route: 065
     Dates: start: 20180817
  4. WARFARIN [Suspect]
     Active Substance: WARFARIN
     Indication: HYPOPLASTIC LEFT HEART SYNDROME
     Dosage: 1.2 MG, DAILY
     Route: 065
     Dates: end: 20210804
  5. UPTRAVI [Suspect]
     Active Substance: SELEXIPAG
     Dosage: 0.2 MG, BID
     Route: 048
     Dates: start: 20180820, end: 20180911
  6. UPTRAVI [Suspect]
     Active Substance: SELEXIPAG
     Indication: PULMONARY ARTERIAL HYPERTENSION
     Dosage: 0.1 MG, BID
     Route: 048
     Dates: start: 20180817, end: 20180819
  7. UPTRAVI [Suspect]
     Active Substance: SELEXIPAG
     Dosage: 0.6 MG, DAILY
     Route: 065
     Dates: start: 20180912, end: 20180925
  8. UPTRAVI [Suspect]
     Active Substance: SELEXIPAG
     Dosage: 0.4 MG, BID
     Route: 048
     Dates: start: 20180926, end: 20190115
  9. ASACOL [Concomitant]
     Active Substance: MESALAMINE
     Indication: PROTEIN-LOSING GASTROENTEROPATHY
     Dosage: UNK UNK, UNKNOWN
     Route: 065
     Dates: end: 20190522
  10. FUROSEMIDE. [Concomitant]
     Active Substance: FUROSEMIDE
     Indication: PRODUCT USED FOR UNKNOWN INDICATION
     Dosage: 60 MG, UNKNOWN
     Dates: start: 20180817
  11. UPTRAVI [Suspect]
     Active Substance: SELEXIPAG
     Dosage: 1.0 MG, BID
     Route: 048
     Dates: start: 20190116, end: 20190212
  12. UPTRAVI [Suspect]
     Active Substance: SELEXIPAG
     Dosage: 0.4 MG, BID
     Route: 048
     Dates: start: 20190213

REACTIONS (14)
  - Hepatic mass [Not Recovered/Not Resolved]
  - Upper respiratory tract inflammation [Recovered/Resolved]
  - Blood uric acid increased [Recovering/Resolving]
  - Fibrinous bronchitis [Recovering/Resolving]
  - Off label use [Unknown]
  - Blood immunoglobulin G decreased [Recovered/Resolved]
  - Protein-losing gastroenteropathy [Not Recovered/Not Resolved]
  - Headache [Recovering/Resolving]
  - Hypertension [Not Recovered/Not Resolved]
  - Malaise [Recovering/Resolving]
  - Haematochezia [Recovered/Resolved]
  - Pain in jaw [Recovering/Resolving]
  - Congenital arterial malformation [Recovered/Resolved]
  - Congenital arterial malformation [Recovered/Resolved]

NARRATIVE: CASE EVENT DATE: 20180819
